FAERS Safety Report 8724963 (Version 2)
Quarter: 2012Q4

REPORT INFORMATION
  Report Type: 
  Country: US (occurrence: US)
  Receive Date: 20120815
  Receipt Date: 20120830
  Transmission Date: 20130627
  Serious: Yes (Other)
  Sender: FDA-Public Use
  Company Number: US-JHP PHARMACEUTICALS, LLC-JHP201200397

PATIENT
  Age: 32 Year
  Sex: Female

DRUGS (1)
  1. PITOCIN [Suspect]
     Indication: POSTPARTUM HAEMORRHAGE
     Dosage: 40 Units total
     Route: 042
     Dates: start: 20120801, end: 20120801

REACTIONS (2)
  - Postpartum haemorrhage [Recovered/Resolved]
  - Drug ineffective [Recovered/Resolved]
